FAERS Safety Report 6256138-X (Version None)
Quarter: 2009Q3

REPORT INFORMATION
  Report Type: 
  Country: None (occurrence: None)
  Receive Date: 20090706
  Receipt Date: 20090623
  Transmission Date: 20100115
  Serious: Yes (Hospitalization)
  Sender: FDA-Public Use
  Company Number: PHHY2009BE25461

PATIENT
  Sex: Male

DRUGS (23)
  1. RASILEZ [Suspect]
     Indication: PROPHYLAXIS
     Dosage: 150 MG, UNK
     Route: 048
     Dates: start: 20081201
  2. RASILEZ [Interacting]
     Dosage: 300 MG, UNK
     Route: 048
     Dates: end: 20090405
  3. NEPRESOL [Interacting]
     Dosage: UNK
     Dates: start: 20090301, end: 20090405
  4. LISINOPRIL [Concomitant]
     Dosage: 1 DF DAILY
     Dates: start: 20090405
  5. HUMALOG [Concomitant]
  6. LANTUS [Concomitant]
     Dosage: 20 IU/ DAY
  7. D-CURE [Concomitant]
     Dosage: 1 VIAL/ 2 WEEKS
  8. AVODART [Concomitant]
     Dosage: 0.25 MG DAILY
  9. PLAVIX [Concomitant]
     Dosage: 75 MG, QD
  10. GARLIC [Concomitant]
  11. TR-B-VIT [Concomitant]
     Dosage: UNK, QD
  12. QUATRAL [Concomitant]
     Dosage: UNK, QD
  13. LIPITOR [Concomitant]
     Dosage: 20 MG DAILY
  14. MOXONIDINE [Concomitant]
     Dosage: 0.6 MG DAILY
  15. ISOTEN [Concomitant]
     Dosage: 10 MG, UNK
  16. VASEXTEN [Concomitant]
     Dosage: UNK, BID
  17. XATRAL [Concomitant]
     Dosage: 10 MG, QD
  18. BUMEX [Concomitant]
     Dosage: 1 MG DAILY
  19. ZOLPIDEM [Concomitant]
     Dosage: 1 DF DAILY
  20. DAFLON [Concomitant]
     Dosage: 25 MG DAILY
  21. MINITRAN [Concomitant]
     Dosage: 5 MG DAILY
  22. PARAPHINE [Concomitant]
     Dosage: 25 MG, UNK
  23. MICARDIS [Concomitant]

REACTIONS (8)
  - BLOOD CREATININE INCREASED [None]
  - BLOOD PRESSURE INADEQUATELY CONTROLLED [None]
  - DRUG INTERACTION [None]
  - DYSPNOEA [None]
  - FLUID RETENTION [None]
  - OEDEMA [None]
  - RENAL IMPAIRMENT [None]
  - WEIGHT INCREASED [None]
